FAERS Safety Report 8732763 (Version 2)
Quarter: 2012Q4

REPORT INFORMATION
  Report Type: 
  Country: US (occurrence: US)
  Receive Date: 20120820
  Receipt Date: 20121102
  Transmission Date: 20130627
  Serious: Yes (Other)
  Sender: FDA-Public Use
  Company Number: US-ROCHE-1061671

PATIENT
  Sex: Female
  Weight: 45.4 kg

DRUGS (3)
  1. ACCUTANE [Suspect]
     Indication: ACNE CYSTIC
     Route: 048
     Dates: start: 19940406, end: 19940723
  2. ACCUTANE [Suspect]
     Route: 048
     Dates: start: 19960229, end: 19960926
  3. ORTHO TRI CYCLEN [Concomitant]

REACTIONS (5)
  - Inflammatory bowel disease [Unknown]
  - Colitis microscopic [Unknown]
  - Depression [Unknown]
  - Bipolar disorder [Unknown]
  - Irritable bowel syndrome [Unknown]
